FAERS Safety Report 16367421 (Version 4)
Quarter: 2019Q3

REPORT INFORMATION
  Report Type: Spontaneous
  Country: US (occurrence: US)
  Receive Date: 20190529
  Receipt Date: 20190712
  Transmission Date: 20191004
  Serious: No
  Sender: FDA-Public Use
  Company Number: US-PFIZER INC-2019228084

PATIENT
  Age: 42 Year
  Sex: Female
  Weight: 88 kg

DRUGS (2)
  1. GENOTROPIN MQ [Suspect]
     Active Substance: SOMATROPIN
     Indication: HYPOPITUITARISM
     Dosage: 0.4 MG, DAILY (INJECT UNDER THE SKIN; 0.4MG/0.25ML)
     Route: 058
     Dates: start: 20190517, end: 20190524
  2. GENOTROPIN MQ [Suspect]
     Active Substance: SOMATROPIN
     Indication: GROWTH HORMONE DEFICIENCY
     Dosage: UNK, ALTERNATE DAY
     Dates: start: 20190613

REACTIONS (7)
  - Injection site pain [Unknown]
  - Oedema [Recovered/Resolved]
  - Sinusitis [Unknown]
  - Contusion [Unknown]
  - Fluid retention [Recovered/Resolved]
  - Ear infection [Recovered/Resolved]
  - Herpes zoster [Unknown]

NARRATIVE: CASE EVENT DATE: 2019
